FAERS Safety Report 8369604-8 (Version None)
Quarter: 2012Q2

REPORT INFORMATION
  Report Type: 
  Country: None (occurrence: None)
  Receive Date: 20120518
  Receipt Date: 20120503
  Transmission Date: 20120825
  Serious: Yes (Hospitalization, Other)
  Sender: FDA-Public Use
  Company Number: US-MYLANLABS-2008AL012003

PATIENT
  Age: 63 Year
  Sex: Male
  Weight: 81.65 kg

DRUGS (24)
  1. FOLIC ACID [Concomitant]
  2. MICONAZOLE [Concomitant]
  3. CAPTOPRIL [Concomitant]
  4. COUMADIN [Concomitant]
  5. LACTULOSE [Concomitant]
  6. METOPROLOL [Concomitant]
  7. FUROSEMIDE [Concomitant]
  8. DIGOXIN [Suspect]
     Indication: CARDIAC DISORDER
     Route: 048
     Dates: start: 20060802, end: 20080520
  9. SIMVASTATIN [Concomitant]
  10. ENALAPRIL MALEATE [Concomitant]
  11. ZOCOR [Concomitant]
  12. ATENOLOL [Concomitant]
  13. ACETIC ACID [Concomitant]
  14. MECLIZINE [Concomitant]
  15. NIFEDIPINE [Concomitant]
  16. DILTIAZEM [Concomitant]
  17. GATIFLOXACIN [Concomitant]
  18. CLONIDINE [Concomitant]
  19. ASPIRIN [Concomitant]
  20. HYDROCHLOROTHIAZIDE [Concomitant]
  21. WARFARIN SODIUM [Concomitant]
  22. PRILOSEC [Concomitant]
  23. METFORMIN HCL [Concomitant]
  24. SENOKOT [Concomitant]

REACTIONS (63)
  - CHEST PAIN [None]
  - TACHYCARDIA [None]
  - BLOOD PRESSURE INCREASED [None]
  - PALPITATIONS [None]
  - HYPOACUSIS [None]
  - CARDIOVERSION [None]
  - CYTOLOGY ABNORMAL [None]
  - SCAN MYOCARDIAL PERFUSION ABNORMAL [None]
  - ABDOMINAL PAIN [None]
  - GENERALISED OEDEMA [None]
  - JUGULAR VEIN DISTENSION [None]
  - TOBACCO USER [None]
  - DIZZINESS [None]
  - COUGH [None]
  - HYPONATRAEMIA [None]
  - FIBROSIS [None]
  - DYSPNOEA [None]
  - CORONARY ARTERY DISEASE [None]
  - CARDIAC FAILURE CONGESTIVE [None]
  - BRAIN STEM INFARCTION [None]
  - COMPUTERISED TOMOGRAM ABNORMAL [None]
  - PULMONARY CONGESTION [None]
  - WHEEZING [None]
  - ABDOMINAL DISTENSION [None]
  - CHEST X-RAY ABNORMAL [None]
  - VERTIGO [None]
  - ILL-DEFINED DISORDER [None]
  - ECONOMIC PROBLEM [None]
  - EFFUSION [None]
  - CHRONIC OBSTRUCTIVE PULMONARY DISEASE [None]
  - ADVERSE DRUG REACTION [None]
  - PLEURAL EFFUSION [None]
  - TREATMENT NONCOMPLIANCE [None]
  - HEART RATE INCREASED [None]
  - MASS [None]
  - CARDIOMEGALY [None]
  - FEELING ABNORMAL [None]
  - HYPERTENSION [None]
  - ASPIRATION PLEURAL CAVITY [None]
  - OCCULT BLOOD POSITIVE [None]
  - ULTRASOUND DOPPLER ABNORMAL [None]
  - INJURY [None]
  - DELIRIUM [None]
  - SICK SINUS SYNDROME [None]
  - PULMONARY MASS [None]
  - OEDEMA PERIPHERAL [None]
  - ATRIAL FIBRILLATION [None]
  - FLATULENCE [None]
  - ORTHOPNOEA [None]
  - ARTERIOGRAM CAROTID ABNORMAL [None]
  - ELECTROCARDIOGRAM ABNORMAL [None]
  - EMPHYSEMA [None]
  - ATRIAL FLUTTER [None]
  - CONSTIPATION [None]
  - FAECES DISCOLOURED [None]
  - ASCITES [None]
  - GRAVITATIONAL OEDEMA [None]
  - ATELECTASIS [None]
  - BREATH SOUNDS ABNORMAL [None]
  - DIPLOPIA [None]
  - MICROANGIOPATHY [None]
  - NEPHROLITHIASIS [None]
  - NUCLEAR MAGNETIC RESONANCE IMAGING BRAIN ABNORMAL [None]
